FAERS Safety Report 13782534 (Version 1)
Quarter: 2017Q3

REPORT INFORMATION
  Report Type: Spontaneous
  Country: JP (occurrence: JP)
  Receive Date: 20170724
  Receipt Date: 20170724
  Transmission Date: 20171127
  Serious: Yes (Death, Other)
  Sender: FDA-Public Use
  Company Number: JP-PFIZER INC-2017314084

PATIENT
  Age: 62 Year
  Sex: Male
  Weight: 62 kg

DRUGS (1)
  1. TEMSIROLIMUS [Suspect]
     Active Substance: TEMSIROLIMUS
     Indication: METASTATIC RENAL CELL CARCINOMA
     Dosage: 25 MG, WEEKLY

REACTIONS (7)
  - Hiccups [Unknown]
  - Nausea [Unknown]
  - General physical health deterioration [Unknown]
  - Neoplasm progression [Fatal]
  - Diarrhoea [Unknown]
  - Ascites [Unknown]
  - Pneumonia bacterial [Unknown]
